FAERS Safety Report 5267270-1 (Version None)
Quarter: 2007Q1

REPORT INFORMATION
  Report Type: 
  Country: None (occurrence: None)
  Receive Date: 20070313
  Receipt Date: 20070227
  Transmission Date: 20070707
  Serious: Yes (Other)
  Sender: FDA-Public Use
  Company Number: B0461205A

PATIENT
  Age: 84 Year
  Sex: Male
  Weight: 63.4582 kg

DRUGS (6)
  1. WELLBUTRIN [Suspect]
  2. METOCLOPRAMIDE HCL [Suspect]
     Indication: ABDOMINAL DISCOMFORT
  3. PRAZOSIN HCL [Concomitant]
  4. METHYLDOPA [Concomitant]
  5. IBUPROFEN [Concomitant]
  6. LORATADINE [Concomitant]

REACTIONS (5)
  - BALANCE DISORDER [None]
  - DEPRESSION [None]
  - PARKINSONISM [None]
  - SALIVARY HYPERSECRETION [None]
  - TREMOR [None]
